FAERS Safety Report 7513859-6 (Version None)
Quarter: 2011Q2

REPORT INFORMATION
  Report Type: 
  Country: None (occurrence: None)
  Receive Date: 20110531
  Receipt Date: 20110518
  Transmission Date: 20111010
  Serious: Yes (Hospitalization, Other)
  Sender: FDA-Public Use
  Company Number: PHHY2011JP42491

PATIENT
  Sex: Male

DRUGS (1)
  1. TEGRETOL [Suspect]
     Dosage: UNK
     Route: 048
     Dates: start: 20110114, end: 20110308

REACTIONS (4)
  - PYREXIA [None]
  - APHAGIA [None]
  - CHOLANGITIS [None]
  - NASOPHARYNGITIS [None]
